FAERS Safety Report 5633569-X (Version None)
Quarter: 2008Q1

REPORT INFORMATION
  Report Type: 
  Country: None (occurrence: None)
  Receive Date: 20080221
  Receipt Date: 20080212
  Transmission Date: 20080703
  Serious: Yes (Hospitalization)
  Sender: FDA-Public Use
  Company Number: PHHO2007US17624

PATIENT
  Age: 41 Year
  Sex: Male
  Weight: 82 kg

DRUGS (7)
  1. NILOTINIB VS IMATINIB [Suspect]
     Indication: GASTROINTESTINAL STROMAL TUMOUR
     Dosage: 400 MG, BID
     Route: 048
     Dates: start: 20071010, end: 20071020
  2. OXYCODONE HCL [Concomitant]
     Indication: PAIN
     Dosage: 5 MG, PRN
  3. LOPID [Concomitant]
  4. ATENOLOL [Concomitant]
     Indication: HYPERTENSION
     Dosage: 12.5 MG, QD
     Route: 048
     Dates: start: 20070309
  5. GEMFIBROZIL [Concomitant]
     Indication: HYPERCHOLESTEROLAEMIA
     Dosage: 600 MG, BID
     Route: 048
     Dates: start: 20070319
  6. HYDROCHLOROTHIAZIDE [Concomitant]
     Indication: HYPERTENSION
     Dosage: 25 MG, QD
     Route: 048
     Dates: start: 20071018
  7. FENTANYL [Concomitant]
     Indication: ABDOMINAL PAIN
     Dosage: 50 UNK, UNK

REACTIONS (7)
  - CEREBRAL ISCHAEMIA [None]
  - DYSARTHRIA [None]
  - ELECTROCARDIOGRAM T WAVE ABNORMAL [None]
  - HEADACHE [None]
  - HEMIPARESIS [None]
  - HEMIPLEGIA [None]
  - HYPOAESTHESIA [None]
